FAERS Safety Report 5204470-0 (Version None)
Quarter: 2007Q1

REPORT INFORMATION
  Report Type: 
  Country: None (occurrence: None)
  Receive Date: 20070110
  Receipt Date: 20060404
  Transmission Date: 20070707
  Serious: Yes (Other)
  Sender: FDA-Public Use
  Company Number: US-BRISTOL-MYERS SQUIBB COMPANY-13337399

PATIENT
  Age: 62 Year
  Sex: Female

DRUGS (4)
  1. ABILIFY [Suspect]
     Indication: BIPOLAR DISORDER
  2. TRILEPTAL [Concomitant]
  3. VASOTEC [Concomitant]
  4. PROTONIX [Concomitant]

REACTIONS (1)
  - PANCREATITIS [None]
